FAERS Safety Report 7608940-7 (Version None)
Quarter: 2011Q3

REPORT INFORMATION
  Report Type: 
  Country: None (occurrence: None)
  Receive Date: 20110714
  Receipt Date: 20110708
  Transmission Date: 20111222
  Serious: Yes (Hospitalization)
  Sender: FDA-Public Use
  Company Number: US-GLAXOSMITHKLINE-A0936064A

PATIENT
  Age: 72 Year
  Sex: Male

DRUGS (1)
  1. ADVAIR DISKUS 100/50 [Suspect]
     Indication: EX-TOBACCO USER
     Route: 055

REACTIONS (3)
  - PNEUMONIA [None]
  - DYSPNOEA [None]
  - GASTRIC DILATATION [None]
